FAERS Safety Report 4313441-8 (Version None)
Quarter: 2004Q1

REPORT INFORMATION
  Report Type: 
  Country: None (occurrence: None)
  Receive Date: 20040304
  Receipt Date: 20040212
  Transmission Date: 20041129
  Serious: Yes (Hospitalization, Other)
  Sender: FDA-Public Use
  Company Number: USA040259185

PATIENT
  Age: 59 Year
  Sex: Female
  Weight: 112 kg

DRUGS (2)
  1. HUMALOG [Suspect]
     Indication: DIABETES MELLITUS
     Dosage: 68 U/DAY
     Dates: start: 20000701
  2. LANTUS [Concomitant]

REACTIONS (5)
  - CARDIAC FAILURE CONGESTIVE [None]
  - INSULIN RESISTANCE [None]
  - PULMONARY OEDEMA [None]
  - STRESS SYMPTOMS [None]
  - WEIGHT INCREASED [None]
